FAERS Safety Report 10004598 (Version 1)
Quarter: 2014Q1

REPORT INFORMATION
  Report Type: Spontaneous
  Country: JP (occurrence: JP)
  Receive Date: 20140312
  Receipt Date: 20140312
  Transmission Date: 20141002
  Serious: Yes (Death)
  Sender: FDA-Public Use
  Company Number: PHHY2014JP028829

PATIENT
  Age: 69 Year
  Sex: Female

DRUGS (5)
  1. MEROPENEM [Suspect]
  2. DOXORUBICIN [Concomitant]
     Indication: CHEMOTHERAPY
     Route: 042
  3. METHOTREXATE [Concomitant]
     Indication: CHEMOTHERAPY
  4. VINBLASTINE SULFATE [Concomitant]
     Indication: CHEMOTHERAPY
  5. CISPLATIN [Concomitant]
     Indication: CHEMOTHERAPY

REACTIONS (2)
  - Septic shock [Fatal]
  - Drug ineffective [Unknown]
